FAERS Safety Report 6066984-3 (Version None)
Quarter: 2009Q1

REPORT INFORMATION
  Report Type: 
  Country: None (occurrence: None)
  Receive Date: 20090205
  Receipt Date: 20081117
  Transmission Date: 20090719
  Serious: No
  Sender: FDA-Public Use
  Company Number: US-ABBOTT-08P-163-0483693-00

PATIENT
  Sex: Male
  Weight: 71.732 kg

DRUGS (1)
  1. VICODIN [Suspect]
     Indication: CARPAL TUNNEL DECOMPRESSION

REACTIONS (4)
  - EYE SWELLING [None]
  - LIP SWELLING [None]
  - OEDEMA MOUTH [None]
  - PALPITATIONS [None]
